FAERS Safety Report 10936252 (Version 1)
Quarter: 2015Q1

REPORT INFORMATION
  Report Type: Spontaneous
  Country: US (occurrence: None)
  Receive Date: 20150320
  Receipt Date: 20150320
  Transmission Date: 20150721
  Serious: Yes (Hospitalization)
  Sender: FDA-Public Use
  Company Number: None

PATIENT
  Age: 35 Year
  Sex: Male
  Weight: 97.52 kg

DRUGS (1)
  1. DELSYM [Suspect]
     Active Substance: DEXTROMETHORPHAN
     Indication: COUGH
     Dates: start: 20150305, end: 20150309

REACTIONS (4)
  - Mania [None]
  - Aggression [None]
  - Drug interaction [None]
  - Psychotic disorder [None]

NARRATIVE: CASE EVENT DATE: 20150309
